FAERS Safety Report 5532443-7 (Version None)
Quarter: 2007Q4

REPORT INFORMATION
  Report Type: 
  Country: None (occurrence: None)
  Receive Date: 20071203
  Receipt Date: 20071121
  Transmission Date: 20080405
  Serious: Yes (Other)
  Sender: FDA-Public Use
  Company Number: US-PFIZER INC-2007029256

PATIENT
  Sex: Female
  Weight: 90.7 kg

DRUGS (7)
  1. LYRICA [Suspect]
     Indication: FIBROMYALGIA
     Route: 048
  2. LYRICA [Suspect]
     Indication: ARTHRITIS
  3. ATENOLOL [Concomitant]
     Route: 048
  4. LISINOPRIL [Concomitant]
     Route: 048
  5. ACETYLSALICYLIC ACID SRT [Concomitant]
     Route: 048
  6. NEXIUM [Concomitant]
  7. ULTRACET [Concomitant]
     Route: 048

REACTIONS (4)
  - EYE PAIN [None]
  - MEMORY IMPAIRMENT [None]
  - RETINAL DISORDER [None]
  - WEIGHT INCREASED [None]
